FAERS Safety Report 8333734-7 (Version None)
Quarter: 2012Q2

REPORT INFORMATION
  Report Type: 
  Country: None (occurrence: None)
  Receive Date: 20120503
  Receipt Date: 20120503
  Transmission Date: 20120825
  Serious: Yes (Life-Threatening, Hospitalization)
  Sender: FDA-Public Use
  Company Number: None

PATIENT
  Age: 70 Year
  Sex: Male
  Weight: 89.811 kg

DRUGS (1)
  1. AZITHIOPRINE [Suspect]
     Dosage: |DOSAGETEXT: 50 MCG||STRENGTH: 50 MCG||FREQ: 1||ROUTE: ORAL|
     Route: 048
     Dates: start: 20120404, end: 20120407

REACTIONS (3)
  - RASH [None]
  - VOMITING [None]
  - DIARRHOEA [None]
